FAERS Safety Report 12725257 (Version 1)
Quarter: 2016Q3

REPORT INFORMATION
  Report Type: Spontaneous
  Country: US (occurrence: US)
  Receive Date: 20160906
  Receipt Date: 20160906
  Transmission Date: 20161109
  Serious: No
  Sender: FDA-Public Use
  Company Number: None

PATIENT
  Age: 61 Year
  Sex: Male

DRUGS (1)
  1. PREZCOBIX [Suspect]
     Active Substance: COBICISTAT\DARUNAVIR ETHANOLATE
     Indication: HIV INFECTION

REACTIONS (6)
  - Abdominal pain upper [None]
  - Nausea [None]
  - Vomiting [None]
  - Arthralgia [None]
  - Vision blurred [None]
  - Dry mouth [None]

NARRATIVE: CASE EVENT DATE: 20160902
